FAERS Safety Report 15369738 (Version 1)
Quarter: 2018Q3

REPORT INFORMATION
  Report Type: Spontaneous
  Country: IT (occurrence: IT)
  Receive Date: 20180911
  Receipt Date: 20180911
  Transmission Date: 20181010
  Serious: Yes (Other)
  Sender: FDA-Public Use
  Company Number: IT-ROCHE-2182825

PATIENT
  Age: 69 Year
  Sex: Female

DRUGS (3)
  1. LETROZOLE. [Concomitant]
     Active Substance: LETROZOLE
     Indication: BREAST CANCER
     Route: 048
     Dates: start: 20160218, end: 20170922
  2. AVASTIN [Suspect]
     Active Substance: BEVACIZUMAB
     Indication: METAPLASTIC BREAST CARCINOMA
     Route: 041
     Dates: start: 20160714
  3. PACLITAXEL. [Suspect]
     Active Substance: PACLITAXEL
     Indication: METAPLASTIC BREAST CARCINOMA
     Route: 041
     Dates: start: 20160714, end: 20170313

REACTIONS (3)
  - Hypertension [Unknown]
  - Alopecia [Unknown]
  - Paraesthesia [Unknown]
